FAERS Safety Report 16235618 (Version 2)
Quarter: 2019Q2

REPORT INFORMATION
  Report Type: Report from Study
  Country: US (occurrence: US)
  Receive Date: 20190424
  Receipt Date: 20190516
  Transmission Date: 20190711
  Serious: Yes (Other)
  Sender: FDA-Public Use
  Company Number: US-JAZZ-2016-US-022868

PATIENT
  Sex: Female

DRUGS (30)
  1. XYREM [Suspect]
     Active Substance: SODIUM OXYBATE
     Indication: CATAPLEXY
     Dosage: DOSE ADJUSTMENT
     Route: 048
     Dates: start: 2013, end: 2014
  2. KRILL OIL [Concomitant]
     Active Substance: DIETARY SUPPLEMENT
  3. DOXYCYCLINE HYCLATE. [Concomitant]
     Active Substance: DOXYCYCLINE HYCLATE
  4. METHYLPHENIDATE. [Concomitant]
     Active Substance: METHYLPHENIDATE
  5. TRAMADOL HCL [Concomitant]
     Active Substance: TRAMADOL HYDROCHLORIDE
  6. XYREM [Suspect]
     Active Substance: SODIUM OXYBATE
     Dosage: 4.5 G, BID
     Route: 048
     Dates: start: 2014, end: 2018
  7. GABAPENTIN. [Suspect]
     Active Substance: GABAPENTIN
     Indication: NEURALGIA
  8. ADDERALL [Concomitant]
     Active Substance: AMPHETAMINE ASPARTATE\AMPHETAMINE SULFATE\DEXTROAMPHETAMINE SACCHARATE\DEXTROAMPHETAMINE SULFATE
  9. NUVIGIL [Concomitant]
     Active Substance: ARMODAFINIL
  10. TRAMADOL. [Concomitant]
     Active Substance: TRAMADOL
  11. VITAMIN D2 [Concomitant]
     Active Substance: ERGOCALCIFEROL
  12. HYOSCYAMINE SULFATE. [Concomitant]
     Active Substance: HYOSCYAMINE SULFATE
  13. XYREM [Suspect]
     Active Substance: SODIUM OXYBATE
     Indication: NARCOLEPSY
     Dosage: 2.25 G, BID
     Route: 048
     Dates: start: 201308, end: 2013
  14. DIAZEPAM. [Concomitant]
     Active Substance: DIAZEPAM
  15. PROMETHAZINE [Concomitant]
     Active Substance: PROMETHAZINE\PROMETHAZINE HYDROCHLORIDE
  16. HYDROCHLOROTHIAZIDE. [Concomitant]
     Active Substance: HYDROCHLOROTHIAZIDE
  17. FENOFIBRATE. [Concomitant]
     Active Substance: FENOFIBRATE
  18. MELATONIN [Concomitant]
     Active Substance: MELATONIN
  19. ALPRAZOLAM. [Concomitant]
     Active Substance: ALPRAZOLAM
  20. BIOTIN [Concomitant]
     Active Substance: BIOTIN
  21. LISINOPRIL. [Concomitant]
     Active Substance: LISINOPRIL
  22. LEVAQUIN [Suspect]
     Active Substance: LEVOFLOXACIN
     Indication: PRODUCT USED FOR UNKNOWN INDICATION
     Dosage: UNK
  23. IBUPROFEN. [Concomitant]
     Active Substance: IBUPROFEN
  24. METFORMIN HCL [Concomitant]
     Active Substance: METFORMIN HYDROCHLORIDE
  25. FOLIC ACID. [Concomitant]
     Active Substance: FOLIC ACID
  26. CYCLOBENZAPRINE. [Suspect]
     Active Substance: CYCLOBENZAPRINE
     Indication: PRODUCT USED FOR UNKNOWN INDICATION
     Dosage: UNK
     Dates: start: 200608
  27. OMEPRAZOLE. [Concomitant]
     Active Substance: OMEPRAZOLE
  28. FLUOXETINE HCL [Concomitant]
     Active Substance: FLUOXETINE HYDROCHLORIDE
  29. LIPITOR [Concomitant]
     Active Substance: ATORVASTATIN CALCIUM
  30. VITAMIN B COMPLEX [Concomitant]
     Active Substance: CYANOCOBALAMIN\DEXPANTHENOL\NIACINAMIDE\PYRIDOXINE HYDROCHLORIDE\RIBOFLAVIN 5^-PHOSPHATE SODIUM\THIAMINE HYDROCHLORIDE\VITAMIN B COMPLEX

REACTIONS (14)
  - Neuralgia [Unknown]
  - Swelling [Unknown]
  - Influenza [Unknown]
  - Cardiac failure chronic [Not Recovered/Not Resolved]
  - Intervertebral disc degeneration [Unknown]
  - Depression [Recovering/Resolving]
  - Bronchitis chronic [Unknown]
  - Malaise [Not Recovered/Not Resolved]
  - Migraine [Unknown]
  - Lung disorder [Not Recovered/Not Resolved]
  - Arthritis [Unknown]
  - Fungal infection [Not Recovered/Not Resolved]
  - Dyspnoea [Unknown]
  - Cardiac disorder [Unknown]

NARRATIVE: CASE EVENT DATE: 2016
